FAERS Safety Report 8611318 (Version 3)
Quarter: 2014Q2

REPORT INFORMATION
  Report Type: Report from Study
  Country: ES (occurrence: ES)
  Receive Date: 20120612
  Receipt Date: 20140418
  Transmission Date: 20141212
  Serious: Yes (Hospitalization)
  Sender: FDA-Public Use
  Company Number: PHHO2012ES008722

PATIENT
  Sex: 0

DRUGS (2)
  1. SALBUTAMOL [Suspect]
     Indication: BRONCHITIS
     Dosage: UNK, TID
     Route: 055
     Dates: start: 20120520, end: 20120524
  2. AFINITOR [Suspect]
     Indication: ASTROCYTOMA, LOW GRADE
     Dosage: 2.5 MG, QD
     Route: 048
     Dates: start: 20120212

REACTIONS (2)
  - Extrasystoles [Recovered/Resolved]
  - Asthma [Recovered/Resolved]
